FAERS Safety Report 8569916 (Version 2)
Quarter: 2012Q4

REPORT INFORMATION
  Report Type: Report from Study
  Country: JP (occurrence: JP)
  Receive Date: 20120518
  Receipt Date: 20120905
  Transmission Date: 20130627
  Serious: Yes (Death, Hospitalization, Other)
  Sender: FDA-Public Use
  Company Number: JP-ROCHE-747356

PATIENT
  Age: 55 None
  Sex: Male
  Weight: 64 kg

DRUGS (11)
  1. AVASTIN [Suspect]
     Indication: LUNG ADENOCARCINOMA METASTATIC
     Dosage: dose: 963 mg
     Route: 041
     Dates: start: 20101110, end: 20101110
  2. HEPARIN SODIUM [Suspect]
     Indication: DEEP VEIN THROMBOSIS
     Dosage: 10-20 ku/day
     Route: 041
     Dates: start: 20101115, end: 20101124
  3. WARFARIN POTASSIUM [Suspect]
     Indication: DEEP VEIN THROMBOSIS
     Dosage: 2-3-mg/day
     Route: 048
     Dates: start: 20101118, end: 20101129
  4. TAXOTERE [Concomitant]
     Indication: LUNG ADENOCARCINOMA METASTATIC
     Route: 041
     Dates: start: 20101110, end: 20101110
  5. MOBIC [Concomitant]
     Dosage: DOSAGE IS UNCERTAIN
     Route: 048
  6. CALBLOCK [Concomitant]
     Indication: HYPERTENSION
     Route: 048
  7. METHYCOBAL [Concomitant]
     Indication: NEUROPATHY PERIPHERAL
     Dosage: FORM; PERORAL AGENT
     Route: 048
  8. PARIET [Concomitant]
     Indication: GASTROOESOPHAGEAL REFLUX DISEASE
     Route: 048
  9. MEDICON [Concomitant]
     Indication: COUGH
     Route: 048
  10. CODEINE PHOSPHATE [Concomitant]
     Indication: COUGH
     Route: 048
  11. BAYASPIRIN [Concomitant]
     Indication: PROPHYLAXIS
     Route: 065
     Dates: start: 20101225, end: 20110127

REACTIONS (7)
  - Disease progression [Fatal]
  - Haemoptysis [Recovered/Resolved]
  - Liver disorder [Recovering/Resolving]
  - Epistaxis [Recovered/Resolved]
  - Epistaxis [Recovered/Resolved]
  - Epistaxis [Recovered/Resolved]
  - Epistaxis [Recovered/Resolved]
